FAERS Safety Report 23173730 (Version 1)
Quarter: 2023Q4

REPORT INFORMATION
  Report Type: Spontaneous
  Country: CN (occurrence: CN)
  Receive Date: 20231111
  Receipt Date: 20231111
  Transmission Date: 20240109
  Serious: Yes (Hospitalization, Other)
  Sender: FDA-Public Use
  Company Number: CN-SA-SAC20231108000263

PATIENT
  Age: 40 Year
  Sex: Female
  Weight: 64 kg

DRUGS (10)
  1. TAXOTERE [Suspect]
     Active Substance: DOCETAXEL
     Indication: Neoplasm malignant
     Dosage: 120 MG, 1X
     Route: 041
     Dates: start: 20231017, end: 20231017
  2. TAXOTERE [Suspect]
     Active Substance: DOCETAXEL
     Indication: Breast cancer
  3. TAXOTERE [Suspect]
     Active Substance: DOCETAXEL
     Indication: Benign uterine neoplasm
  4. TAXOTERE [Suspect]
     Active Substance: DOCETAXEL
     Indication: Hepatic cyst
  5. TAXOTERE [Suspect]
     Active Substance: DOCETAXEL
     Indication: Hepatitis B surface antigen
  6. TRASTUZUMAB [Suspect]
     Active Substance: TRASTUZUMAB
     Indication: Neoplasm malignant
     Dosage: 504MG, 1X
     Route: 041
     Dates: start: 20231017, end: 20231017
  7. CARBOPLATIN [Suspect]
     Active Substance: CARBOPLATIN
     Dosage: 0.7G,1X
     Route: 041
     Dates: start: 20231017, end: 20231017
  8. APREPITANT [Suspect]
     Active Substance: APREPITANT
     Dosage: 1DF, 1X
     Route: 048
     Dates: start: 20231017, end: 20231017
  9. SODIUM CHLORIDE [Concomitant]
     Active Substance: SODIUM CHLORIDE
     Dosage: 250ML, 1X
     Route: 041
     Dates: start: 20231017, end: 20231017
  10. DEXTROSE [Concomitant]
     Active Substance: DEXTROSE\DEXTROSE MONOHYDRATE
     Dosage: 500ML, 1X
     Route: 041
     Dates: start: 20231017, end: 20231017

REACTIONS (6)
  - Gastrointestinal motility disorder [Recovering/Resolving]
  - Gastrointestinal disorder [Recovering/Resolving]
  - Diarrhoea [Recovering/Resolving]
  - Myelosuppression [Recovering/Resolving]
  - Rash [Recovering/Resolving]
  - Pruritus [Recovering/Resolving]

NARRATIVE: CASE EVENT DATE: 20231019
